FAERS Safety Report 10395458 (Version 2)
Quarter: 2014Q3

REPORT INFORMATION
  Report Type: Spontaneous
  Country: US (occurrence: US)
  Receive Date: 20140820
  Receipt Date: 20140903
  Transmission Date: 20150326
  Serious: Yes (Other)
  Sender: FDA-Public Use
  Company Number: US-PFIZER INC-2014229462

PATIENT
  Sex: Male

DRUGS (2)
  1. VIAGRA [Suspect]
     Active Substance: SILDENAFIL CITRATE
     Indication: ERECTILE DYSFUNCTION
     Dosage: UNK, AS NEEDED
     Route: 048
     Dates: start: 201407, end: 20140816
  2. VIAGRA [Suspect]
     Active Substance: SILDENAFIL CITRATE
     Dosage: 500 MG, AS NEEDED
     Route: 048
     Dates: start: 20140816

REACTIONS (4)
  - Extra dose administered [Unknown]
  - Penis disorder [Unknown]
  - Penile haemorrhage [Unknown]
  - Erection increased [Unknown]

NARRATIVE: CASE EVENT DATE: 20140816
